FAERS Safety Report 12796573 (Version 2)
Quarter: 2017Q1

REPORT INFORMATION
  Report Type: Spontaneous
  Country: IT (occurrence: IT)
  Receive Date: 20160929
  Receipt Date: 20170118
  Transmission Date: 20170428
  Serious: Yes (Other)
  Sender: FDA-Public Use
  Company Number: IT-PFIZER INC-2016452922

PATIENT
  Age: 79 Year
  Sex: Male

DRUGS (2)
  1. TEICOPLANINA ZENTIVA [Concomitant]
     Dosage: UNK
     Route: 041
     Dates: start: 20160816, end: 20160917
  2. MEROPENEM. [Suspect]
     Active Substance: MEROPENEM
     Dosage: 500 MG, 1X/DAY
     Route: 041
     Dates: start: 20160906, end: 20160918

REACTIONS (1)
  - Rash morbilliform [Not Recovered/Not Resolved]

NARRATIVE: CASE EVENT DATE: 20160917
